FAERS Safety Report 7179236-5 (Version None)
Quarter: 2010Q4

REPORT INFORMATION
  Report Type: 
  Country: None (occurrence: None)
  Receive Date: 20101209
  Receipt Date: 20101125
  Transmission Date: 20110411
  Serious: Yes (Other)
  Sender: FDA-Public Use
  Company Number: 2010AP000488

PATIENT
  Sex: Female

DRUGS (1)
  1. RANITIDINE HYDROCHLORIDE [Suspect]
     Indication: PROPHYLAXIS
     Dosage: 150 MG

REACTIONS (9)
  - ABDOMINAL PAIN UPPER [None]
  - ANAPHYLACTOID REACTION [None]
  - CHEST PAIN [None]
  - CIRCULATORY COLLAPSE [None]
  - COLD SWEAT [None]
  - DYSPNOEA [None]
  - HYPERHIDROSIS [None]
  - HYPOTENSION [None]
  - NASOPHARYNGITIS [None]
